FAERS Safety Report 17055295 (Version 1)
Quarter: 2019Q4

REPORT INFORMATION
  Report Type: Spontaneous
  Country: US (occurrence: US)
  Receive Date: 20191120
  Receipt Date: 20191120
  Transmission Date: 20200122
  Serious: No
  Sender: FDA-Public Use
  Company Number: US-TEVA-2019-US-1138021

PATIENT
  Age: 80 Year
  Sex: Female

DRUGS (1)
  1. AMLODIPINE W/BENAZEPRIL TEVA [Suspect]
     Active Substance: AMLODIPINE BESYLATE\BENAZEPRIL HYDROCHLORIDE
     Indication: BLOOD PRESSURE MEASUREMENT
     Dosage: AMLODIPINE/BENAZEPRIL 5/10 MG DAILY
     Route: 048

REACTIONS (4)
  - Feeling abnormal [Unknown]
  - Product quality issue [Unknown]
  - Abdominal pain upper [Unknown]
  - Tremor [Unknown]
